FAERS Safety Report 26076368 (Version 1)
Quarter: 2025Q4

REPORT INFORMATION
  Report Type: Spontaneous
  Country: GB (occurrence: GB)
  Receive Date: 20251121
  Receipt Date: 20251121
  Transmission Date: 20260118
  Serious: Yes (Hospitalization, Other)
  Sender: Haleon PLC
  Company Number: GB-MHRA-MED-202511052024502460-PCZSF

PATIENT
  Age: 42 Year
  Sex: Female

DRUGS (1)
  1. NICOTINELL [Suspect]
     Active Substance: NICOTINE
     Indication: Product used for unknown indication

REACTIONS (5)
  - Respiration abnormal [Recovered/Resolved]
  - Medication error [Unknown]
  - Vomiting [Recovered/Resolved]
  - Heart rate [Recovered/Resolved]
  - Dizziness [Recovered/Resolved]
